FAERS Safety Report 19429048 (Version 1)
Quarter: 2021Q2

REPORT INFORMATION
  Report Type: Spontaneous
  Country: US (occurrence: US)
  Receive Date: 20210617
  Receipt Date: 20210617
  Transmission Date: 20210717
  Serious: Yes (Other)
  Sender: FDA-Public Use
  Company Number: None

PATIENT
  Age: 75 Year
  Sex: Female

DRUGS (1)
  1. CLONAZEPAM. [Suspect]
     Active Substance: CLONAZEPAM
     Dates: start: 20210615

REACTIONS (15)
  - Anxiety [None]
  - Feeling abnormal [None]
  - Abdominal pain upper [None]
  - Ear congestion [None]
  - Vomiting [None]
  - Hypertension [None]
  - Fatigue [None]
  - Product colour issue [None]
  - Nausea [None]
  - Product quality issue [None]
  - Insomnia [None]
  - Dizziness [None]
  - Mood altered [None]
  - Diarrhoea [None]
  - Heart rate increased [None]
